FAERS Safety Report 8531916-2 (Version None)
Quarter: 2012Q3

REPORT INFORMATION
  Report Type: 
  Country: None (occurrence: None)
  Receive Date: 20120723
  Receipt Date: 20120706
  Transmission Date: 20120928
  Serious: Yes (Hospitalization)
  Sender: FDA-Public Use
  Company Number: GB-BAYER-2012-072805

PATIENT
  Age: 82 Year
  Sex: Female

DRUGS (11)
  1. ALENDRONATE SODIUM [Concomitant]
     Dosage: DAILY DOSE 70 MG
  2. CODEINE PHOSPHATE AND ACETAMINOPHEN [Concomitant]
     Dosage: DAILY DOSE 4 DF
  3. FOLIC ACID [Concomitant]
     Dosage: DAILY DOSE 5 MG
     Dates: start: 20120519
  4. OMEPRAZOLE [Concomitant]
     Dosage: DAILY DOSE 20 MG
  5. CITALOPRAM [Concomitant]
     Dosage: DAILY DOSE 10 MG
  6. ASPIRIN [Suspect]
     Indication: PRODUCT USED FOR UNKNOWN INDICATION
     Dosage: DAILY DOSE 75 MG
     Route: 048
  7. NAPROXEN SODIUM [Suspect]
     Indication: ARTHRITIS
     Dosage: 500 MG, BID
     Route: 048
     Dates: start: 20120617
  8. DOUBLEBASE(ISOPROPYL MYRISTATE, PARAFFIN) [Concomitant]
  9. LAXIDO(ELECTROLYTES NOS, POLYETHYLENE GLYCOL) [Concomitant]
     Dosage: DAILY DOSE 4 DF
  10. MOVELAT [MUCOPOLYSACCHARIDE POLYSULFURIC ACID ESTER,SALICYLIC ACID [Suspect]
     Indication: ARTHRITIS
     Dosage: DAILY DOSE 3 DF
     Route: 061
     Dates: start: 20120601, end: 20120601
  11. HYPROMELLOSE [Concomitant]

REACTIONS (7)
  - CARDIAC FAILURE [None]
  - ABDOMINAL PAIN [None]
  - TROPONIN I INCREASED [None]
  - BRAIN NATRIURETIC PEPTIDE ABNORMAL [None]
  - MYOCARDIAL INFARCTION [None]
  - GASTROINTESTINAL HAEMORRHAGE [None]
  - HAEMOGLOBIN DECREASED [None]
